FAERS Safety Report 18423452 (Version 7)
Quarter: 2021Q3

REPORT INFORMATION
  Report Type: Spontaneous
  Country: JP (occurrence: JP)
  Receive Date: 20201023
  Receipt Date: 20210910
  Transmission Date: 20211014
  Serious: Yes (Hospitalization, Other)
  Sender: FDA-Public Use
  Company Number: JP-JNJFOC-20201024827

PATIENT
  Age: 80 Year
  Sex: Male
  Weight: 62 kg

DRUGS (9)
  1. PARMODIA [Concomitant]
     Active Substance: PEMAFIBRATE
     Dosage: IN THE MORNING AND EVENING
     Route: 048
  2. TERAMURO [Concomitant]
     Dosage: DOSE UNKNOWN
     Route: 048
  3. ERLEADA [Suspect]
     Active Substance: APALUTAMIDE
     Indication: PROSTATE CANCER
     Dosage: DOSE UNKNOWN
     Route: 048
     Dates: start: 20200827, end: 20201013
  4. ATORVASTATIN [Concomitant]
     Active Substance: ATORVASTATIN
     Dosage: IN THE MORNING
     Route: 048
  5. TELMISARTAN. [Concomitant]
     Active Substance: TELMISARTAN
     Dosage: DOSE UNKNOWN
     Route: 065
  6. SILODOSIN. [Concomitant]
     Active Substance: SILODOSIN
     Dosage: IN THE MORNING AND EVENING
     Route: 048
  7. MESALAZINE [Concomitant]
     Active Substance: MESALAMINE
     Route: 048
  8. AMLODIPINE [Concomitant]
     Active Substance: AMLODIPINE BESYLATE
     Dosage: DOSE UNKNOWN
     Route: 065
  9. SUINY [Concomitant]
     Active Substance: ANAGLIPTIN
     Dosage: DOSE UNKNOWN
     Route: 048

REACTIONS (1)
  - Pustular psoriasis [Recovering/Resolving]

NARRATIVE: CASE EVENT DATE: 20201006
